FAERS Safety Report 8716376 (Version 2)
Quarter: 2012Q4

REPORT INFORMATION
  Report Type: 
  Country: US (occurrence: US)
  Receive Date: 20120810
  Receipt Date: 20120917
  Transmission Date: 20130627
  Serious: No
  Sender: FDA-Public Use
  Company Number: US-009507513-1207USA011464

PATIENT

DRUGS (14)
  1. VICTRELIS [Suspect]
     Indication: HEPATITIS C
     Dosage: 800 mg, tid
     Route: 048
     Dates: start: 20120614
  2. PEGASYS [Suspect]
  3. RIBASPHERE [Suspect]
  4. NEUPOGEN [Concomitant]
  5. UROXATRAL [Concomitant]
  6. CIPRO [Concomitant]
  7. DOXYCYCLINE [Concomitant]
  8. CRESTOR [Concomitant]
  9. BENZONATATE [Concomitant]
  10. TYLENOL [Concomitant]
  11. ADVIL [Concomitant]
  12. LIDOCAINE [Concomitant]
  13. HYDROCORTISONE ACETATE (+) PRAMOXINE HYDROCHLORIDE [Concomitant]
  14. FLOMAX (TAMSULOSIN HYDROCHLORIDE) [Concomitant]

REACTIONS (4)
  - Paranasal sinus hypersecretion [Unknown]
  - Oropharyngeal pain [Unknown]
  - White blood cell count increased [Unknown]
  - Fatigue [Unknown]
